FAERS Safety Report 19968646 (Version 1)
Quarter: 2021Q4

REPORT INFORMATION
  Report Type: Spontaneous
  Country: AU (occurrence: DE)
  Receive Date: 20211019
  Receipt Date: 20211019
  Transmission Date: 20220303
  Serious: Yes (Hospitalization)
  Sender: FDA-Public Use
  Company Number: AU-ALVOGEN-2021-ALVOGEN-117662

PATIENT
  Age: 67 Year
  Sex: Male

DRUGS (2)
  1. DISULFIRAM [Suspect]
     Active Substance: DISULFIRAM
     Indication: HIV infection
  2. VORINOSTAT [Suspect]
     Active Substance: VORINOSTAT
     Indication: HIV infection

REACTIONS (2)
  - Neurotoxicity [Recovered/Resolved]
  - Off label use [Recovered/Resolved]
